FAERS Safety Report 21797996 (Version 1)
Quarter: 2022Q4

REPORT INFORMATION
  Report Type: Spontaneous
  Country: CN (occurrence: CN)
  Receive Date: 20221230
  Receipt Date: 20221230
  Transmission Date: 20230113
  Serious: Yes (Hospitalization, Other)
  Sender: FDA-Public Use
  Company Number: CN-MSNLABS-2022MSNLIT01606

PATIENT

DRUGS (4)
  1. DECITABINE [Suspect]
     Active Substance: DECITABINE
     Indication: Angioimmunoblastic T-cell lymphoma
     Route: 065
  2. TUCIDINOSTAT [Suspect]
     Active Substance: TUCIDINOSTAT
     Indication: Angioimmunoblastic T-cell lymphoma
     Route: 065
  3. SELINEXOR [Suspect]
     Active Substance: SELINEXOR
     Indication: Angioimmunoblastic T-cell lymphoma
     Route: 065
  4. IMATINIB [Concomitant]
     Active Substance: IMATINIB
     Route: 065

REACTIONS (1)
  - Treatment failure [Unknown]
